FAERS Safety Report 20660364 (Version 1)
Quarter: 2022Q1

REPORT INFORMATION
  Report Type: Spontaneous
  Country: US (occurrence: US)
  Receive Date: 20220331
  Receipt Date: 20220331
  Transmission Date: 20220423
  Serious: No
  Sender: FDA-Public Use
  Company Number: US-PFIZER INC-2019468183

PATIENT
  Age: 60 Year
  Sex: Female
  Weight: 70.31 kg

DRUGS (2)
  1. GENOTROPIN [Suspect]
     Active Substance: SOMATROPIN
     Indication: Hypopituitarism
     Dosage: UNK UNK, DAILY [.5 OR 5 CLICKS DAILY SUB Q (SUBCUTANEOUS) INJECTION  ]
     Route: 058
     Dates: start: 1995
  2. GENOTROPIN [Suspect]
     Active Substance: SOMATROPIN
     Indication: Hypopituitarism
     Dosage: 0.5 MG, 1X/DAY

REACTIONS (2)
  - Off label use [Unknown]
  - Weight increased [Unknown]
